FAERS Safety Report 8075515-8 (Version None)
Quarter: 2012Q1

REPORT INFORMATION
  Report Type: 
  Country: None (occurrence: None)
  Receive Date: 20120127
  Receipt Date: 20120124
  Transmission Date: 20120608
  Serious: Yes (Death)
  Sender: FDA-Public Use
  Company Number: TR-BAYER-2012-007987

PATIENT
  Age: 26 Week

DRUGS (1)
  1. CIPROFLOXACIN [Suspect]

REACTIONS (1)
  - BACTERIAL SEPSIS [None]
